FAERS Safety Report 23508047 (Version 2)
Quarter: 2024Q1

REPORT INFORMATION
  Report Type: Spontaneous
  Country: RU (occurrence: None)
  Receive Date: 20240209
  Receipt Date: 20240228
  Transmission Date: 20240409
  Serious: Yes (Other)
  Sender: FDA-Public Use
  Company Number: 2024A008228

PATIENT
  Age: 52 Year
  Sex: Male

DRUGS (3)
  1. SYMBICORT [Suspect]
     Active Substance: BUDESONIDE\FORMOTEROL FUMARATE DIHYDRATE
     Indication: Asthma
     Dosage: 160/4.5 MCG/ML, 120 DOSES DAILY
     Route: 055
     Dates: start: 202312, end: 202401
  2. SYMBICORT [Suspect]
     Active Substance: BUDESONIDE\FORMOTEROL FUMARATE DIHYDRATE
     Indication: Asthma
     Dosage: 80/4.5 MCG/ML, 1 OR 2 TIMES A DAY UNKNOWN
     Route: 055
     Dates: end: 202401
  3. SYMBICORT [Suspect]
     Active Substance: BUDESONIDE\FORMOTEROL FUMARATE DIHYDRATE
     Indication: Asthma
     Dosage: 80/4.5 MCG/ML, 1 OR 2 TIMES A DAY UNKNOWN
     Route: 055

REACTIONS (3)
  - Drug ineffective [Unknown]
  - Cough [Unknown]
  - Product packaging quantity issue [Unknown]
